FAERS Safety Report 11810390 (Version 1)
Quarter: 2015Q4

REPORT INFORMATION
  Report Type: Spontaneous
  Country: US (occurrence: US)
  Receive Date: 20151208
  Receipt Date: 20151208
  Transmission Date: 20160305
  Serious: Yes (Disabling, Other)
  Sender: FDA-Public Use
  Company Number: US-MYLANLABS-2015M1043998

PATIENT

DRUGS (2)
  1. LEVOFLOXACIN. [Suspect]
     Active Substance: LEVOFLOXACIN
     Indication: URINARY TRACT INFECTION
     Dosage: 500 MG/DAY FOR 10 DAYS (3 COURSES)
     Route: 065
  2. LEVOFLOXACIN. [Suspect]
     Active Substance: LEVOFLOXACIN
     Dosage: 750 MG FOR 5 DAYS
     Route: 065

REACTIONS (15)
  - Headache [Unknown]
  - Alopecia [Unknown]
  - Anxiety [Unknown]
  - Tendon disorder [Unknown]
  - Arthralgia [Unknown]
  - Visual impairment [Unknown]
  - Amnesia [Unknown]
  - Hearing impaired [Unknown]
  - Affective disorder [Unknown]
  - Sleep disorder [Unknown]
  - Fatigue [Unknown]
  - Cardiovascular disorder [Unknown]
  - Neuropathy peripheral [Unknown]
  - Sensory disturbance [Unknown]
  - Cognitive disorder [Unknown]
